FAERS Safety Report 15258338 (Version 1)
Quarter: 2018Q3

REPORT INFORMATION
  Report Type: Spontaneous
  Country: GR (occurrence: GR)
  Receive Date: 20180809
  Receipt Date: 20180809
  Transmission Date: 20181010
  Serious: Yes (Hospitalization, Other)
  Sender: FDA-Public Use
  Company Number: GR-TEVA-2018-GR-939563

PATIENT
  Age: 49 Year
  Sex: Male

DRUGS (6)
  1. INFLIXIMAB [Suspect]
     Active Substance: INFLIXIMAB
     Indication: PSORIATIC ARTHROPATHY
     Route: 065
  2. STREPTOMYCIN [Concomitant]
     Active Substance: STREPTOMYCIN\STREPTOMYCIN SULFATE
     Indication: PERICARDITIS TUBERCULOUS
  3. PYRAZINAMIDE. [Concomitant]
     Active Substance: PYRAZINAMIDE
     Indication: PERICARDITIS TUBERCULOUS
  4. RIFAMPICIN [Concomitant]
     Active Substance: RIFAMPIN
     Indication: PERICARDITIS TUBERCULOUS
     Dosage: CONTINUED FOR AN ADDITIONAL 7 MONTHS
  5. METHOTREXATE. [Suspect]
     Active Substance: METHOTREXATE
     Indication: PSORIATIC ARTHROPATHY
     Route: 065
  6. ISONIAZID. [Concomitant]
     Active Substance: ISONIAZID
     Indication: PERICARDITIS TUBERCULOUS
     Dosage: CONTINUED FOR AN ADDITIONAL 7 MONTHS

REACTIONS (4)
  - Immune reconstitution inflammatory syndrome associated tuberculosis [Recovered/Resolved]
  - Lymph node tuberculosis [Recovered/Resolved]
  - Tuberculosis [Recovered/Resolved]
  - Pericarditis tuberculous [Recovered/Resolved]
